FAERS Safety Report 20384470 (Version 2)
Quarter: 2023Q1

REPORT INFORMATION
  Report Type: Spontaneous
  Country: US (occurrence: US)
  Receive Date: 20220127
  Receipt Date: 20230125
  Transmission Date: 20230418
  Serious: Yes (Disabling, Other)
  Sender: FDA-Public Use
  Company Number: US-ALLERGAN-2112945US

PATIENT
  Age: 33 Year
  Sex: Female

DRUGS (5)
  1. BOTOX COSMETIC [Suspect]
     Active Substance: ONABOTULINUMTOXINA
     Indication: Face lift
     Dosage: 2 UNITS, SINGLE
     Dates: start: 202103, end: 202103
  2. BOTOX COSMETIC [Suspect]
     Active Substance: ONABOTULINUMTOXINA
     Indication: Eyelid ptosis
     Dosage: 4 UNITS, SINGLE
     Dates: start: 202103, end: 202103
  3. BOTOX COSMETIC [Suspect]
     Active Substance: ONABOTULINUMTOXINA
     Indication: Skin wrinkling
     Dosage: UNK, SINGLE
     Dates: start: 202103, end: 202103
  4. BOTOX COSMETIC [Suspect]
     Active Substance: ONABOTULINUMTOXINA
     Indication: Skin wrinkling
     Dosage: UNK, SINGLE
     Dates: start: 202103, end: 202103
  5. BOTOX COSMETIC [Suspect]
     Active Substance: ONABOTULINUMTOXINA
     Indication: Skin wrinkling
     Dosage: UNK UNK, SINGLE
     Dates: start: 202103, end: 202103

REACTIONS (5)
  - Eyelid ptosis [Recovered/Resolved]
  - Off label use [Unknown]
  - Brow ptosis [Recovered/Resolved]
  - Asthenopia [Recovered/Resolved]
  - Eyelid disorder [Recovered/Resolved]

NARRATIVE: CASE EVENT DATE: 20210301
